FAERS Safety Report 9892594 (Version 2)
Quarter: 2014Q1

REPORT INFORMATION
  Report Type: Report from Study
  Country: BR (occurrence: BR)
  Receive Date: 20140212
  Receipt Date: 20140310
  Transmission Date: 20141002
  Serious: No
  Sender: FDA-Public Use
  Company Number: PHHY2014BR016016

PATIENT
  Sex: Male
  Weight: 82 kg

DRUGS (6)
  1. EXELON PATCH [Suspect]
     Indication: MEMORY IMPAIRMENT
     Dosage: 13.3 MG, DAILY
     Route: 062
  2. PROLOPA [Concomitant]
     Indication: BLOOD PRESSURE ABNORMAL
     Dosage: HALF TABLET, IN MORNING
  3. LIPITOR [Concomitant]
     Dosage: 1 DF, AT NIGHT
  4. SECOTEX [Concomitant]
     Dosage: UNK UKN, UNK
  5. MOTILIUM//DOMPERIDONE [Concomitant]
     Dosage: 1 DF, AT NIGHT
  6. MEMANTINE [Concomitant]
     Indication: BLOOD PRESSURE
     Dosage: 1 DF, IN THE MORNING

REACTIONS (5)
  - Blood pressure decreased [Recovering/Resolving]
  - Contusion [Recovering/Resolving]
  - Dysstasia [Not Recovered/Not Resolved]
  - Gait disturbance [Not Recovered/Not Resolved]
  - Fall [Not Recovered/Not Resolved]
